FAERS Safety Report 8096217-8 (Version None)
Quarter: 2012Q1

REPORT INFORMATION
  Report Type: 
  Country: None (occurrence: None)
  Receive Date: 20120129
  Receipt Date: 20111220
  Transmission Date: 20120608
  Serious: No
  Sender: FDA-Public Use
  Company Number: US-ABBOTT-11P-163-0885828-00

PATIENT
  Sex: Female
  Weight: 51.302 kg

DRUGS (2)
  1. NUVIGIL [Concomitant]
     Indication: FATIGUE
  2. HUMIRA [Suspect]
     Indication: RHEUMATOID ARTHRITIS
     Dates: start: 20110601

REACTIONS (6)
  - BLOOD GLUCOSE DECREASED [None]
  - BRONCHITIS [None]
  - FEELING ABNORMAL [None]
  - PLEURISY [None]
  - DYSKINESIA [None]
  - NAUSEA [None]
